FAERS Safety Report 5724490-7 (Version None)
Quarter: 2008Q2

REPORT INFORMATION
  Report Type: 
  Country: None (occurrence: None)
  Receive Date: 20080429
  Receipt Date: 20080417
  Transmission Date: 20081010
  Serious: Yes (Hospitalization)
  Sender: FDA-Public Use
  Company Number: 200804AGG00799

PATIENT
  Age: 57 Year
  Sex: Male

DRUGS (4)
  1. TIROFIBAN HYDROCHLORIDE (TIROFIBAN HCL) [Suspect]
     Indication: ACUTE CORONARY SYNDROME
     Dosage: INTRAVENOUS
     Route: 042
     Dates: start: 20080413, end: 20080416
  2. ASPIRIN [Concomitant]
  3. PLAVIX [Concomitant]
  4. LOVENOX [Concomitant]

REACTIONS (3)
  - ENTEROBACTER BACTERAEMIA [None]
  - PYREXIA [None]
  - THERAPEUTIC PRODUCT CONTAMINATION [None]
